FAERS Safety Report 8852608 (Version 2)
Quarter: 2012Q4

REPORT INFORMATION
  Report Type: 
  Country: FR (occurrence: FR)
  Receive Date: 20121022
  Receipt Date: 20121231
  Transmission Date: 20130627
  Serious: Yes (Other)
  Sender: FDA-Public Use
  Company Number: FR-ELI_LILLY_AND_COMPANY-FR201210003443

PATIENT
  Age: 67 Year
  Sex: Male
  Weight: 70 kg

DRUGS (3)
  1. FORSTEO [Suspect]
     Indication: OSTEOPOROSIS
     Dosage: 20 ug, qd
     Route: 058
     Dates: start: 20121008, end: 20121012
  2. KEPPRA [Concomitant]
     Indication: EPILEPSY
     Dosage: 250 mg, unknown
     Dates: start: 2002
  3. CACIT D3 [Concomitant]

REACTIONS (4)
  - Emotional distress [Recovered/Resolved]
  - Depressed mood [Recovered/Resolved]
  - Major depression [Recovered/Resolved]
  - Fatigue [Recovered/Resolved]
